FAERS Safety Report 5628022-3 (Version None)
Quarter: 2008Q1

REPORT INFORMATION
  Report Type: 
  Country: None (occurrence: None)
  Receive Date: 20080215
  Receipt Date: 20080208
  Transmission Date: 20080703
  Serious: Yes (Hospitalization)
  Sender: FDA-Public Use
  Company Number: US-ELI_LILLY_AND_COMPANY-US200802001887

PATIENT
  Sex: Male

DRUGS (23)
  1. HUMALOG [Suspect]
  2. HUMULIN N [Suspect]
  3. LANTUS [Concomitant]
  4. VERAPAMIL [Concomitant]
  5. DIGOXIN [Concomitant]
  6. ZOCOR [Concomitant]
  7. NEXIUM [Concomitant]
  8. ADVAIR DISKUS 100/50 [Concomitant]
  9. DUONEB [Concomitant]
  10. PULMOCORTISON INY [Concomitant]
  11. LOPRESSOR [Concomitant]
  12. LASIX [Concomitant]
  13. SINGULAIR [Concomitant]
  14. PREDNISONE TAB [Concomitant]
  15. COUMADIN [Concomitant]
  16. AVELOX [Concomitant]
  17. MUCINEX [Concomitant]
  18. COLACE [Concomitant]
  19. DIAMOX SRC [Concomitant]
  20. ZAROXOLYN [Concomitant]
  21. K-DUR 10 [Concomitant]
  22. MAGNESIUM OXIDE [Concomitant]
  23. ANTIBIOTICS [Concomitant]

REACTIONS (4)
  - CARDIAC FAILURE CONGESTIVE [None]
  - CHRONIC OBSTRUCTIVE PULMONARY DISEASE [None]
  - LUNG INFECTION [None]
  - PNEUMONIA [None]
